FAERS Safety Report 6378972-8 (Version None)
Quarter: 2009Q3

REPORT INFORMATION
  Report Type: 
  Country: None (occurrence: None)
  Receive Date: 20090923
  Receipt Date: 20090910
  Transmission Date: 20100115
  Serious: Yes (Hospitalization)
  Sender: FDA-Public Use
  Company Number: 1-19884376

PATIENT
  Age: 13 Year
  Sex: Female
  Weight: 54.4316 kg

DRUGS (2)
  1. SOLODYN ER [Suspect]
     Indication: ACNE
     Dosage: 90 MG ONCE DAILY, ORAL
     Route: 048
     Dates: start: 20090624, end: 20090906
  2. ZYRTEC [Concomitant]

REACTIONS (5)
  - CSF PRESSURE INCREASED [None]
  - HEADACHE [None]
  - MUSCULOSKELETAL STIFFNESS [None]
  - PAPILLOEDEMA [None]
  - VOMITING [None]
